FAERS Safety Report 5672135-7 (Version None)
Quarter: 2008Q1

REPORT INFORMATION
  Report Type: 
  Country: None (occurrence: None)
  Receive Date: 20080319
  Receipt Date: 20080305
  Transmission Date: 20080703
  Serious: Yes (Hospitalization, Other)
  Sender: FDA-Public Use
  Company Number: JP-ELI_LILLY_AND_COMPANY-JP200803002735

PATIENT
  Age: 35 Year
  Sex: Female

DRUGS (5)
  1. ZYPREXA [Suspect]
     Indication: SCHIZOPHRENIA
     Dosage: 3 MG, DAILY (1/D)
     Route: 048
     Dates: end: 20080304
  2. PAXIL [Concomitant]
     Indication: DEPRESSION
     Dosage: 20 MG, DAILY (1/D)
     Route: 048
     Dates: end: 20080304
  3. DORAL [Concomitant]
     Indication: INSOMNIA
     Dosage: 15 MG, DAILY (1/D)
     Route: 048
  4. SILECE [Concomitant]
     Indication: INSOMNIA
     Dosage: 2 MG, DAILY (1/D)
     Route: 048
  5. MYSLEE [Concomitant]
     Indication: INSOMNIA
     Dosage: 10 MG, DAILY (1/D)
     Route: 048

REACTIONS (3)
  - BLOOD CREATINE PHOSPHOKINASE INCREASED [None]
  - CHROMATURIA [None]
  - HOSPITALISATION [None]
